FAERS Safety Report 15978491 (Version 1)
Quarter: 2019Q1

REPORT INFORMATION
  Report Type: Spontaneous
  Country: FR (occurrence: FR)
  Receive Date: 20190219
  Receipt Date: 20190219
  Transmission Date: 20190418
  Serious: Yes (Disabling)
  Sender: FDA-Public Use
  Company Number: FR-TEVA-2019-FR-1013898

PATIENT
  Age: 54 Year
  Sex: Male
  Weight: 55 kg

DRUGS (3)
  1. BEVACIZUMAB ((MAMMIFERE/HAMSTER/CELLULES CHO)) [Concomitant]
     Active Substance: BEVACIZUMAB
     Indication: LUNG ADENOCARCINOMA
     Dosage: 425 MILLIGRAM DAILY;
     Route: 042
     Dates: start: 20180929, end: 20180929
  2. ALIMTA [Concomitant]
     Active Substance: PEMETREXED DISODIUM
     Indication: LUNG ADENOCARCINOMA
     Dosage: 675 MILLIGRAM DAILY;
     Route: 042
     Dates: start: 20180929, end: 20180929
  3. CARBOPLATIN. [Suspect]
     Active Substance: CARBOPLATIN
     Indication: LUNG ADENOCARCINOMA
     Dosage: 480 MILLIGRAM DAILY;
     Route: 042
     Dates: start: 20180929, end: 20180929

REACTIONS (1)
  - Hypoacusis [Recovering/Resolving]

NARRATIVE: CASE EVENT DATE: 20181008
